FAERS Safety Report 5410952-9 (Version None)
Quarter: 2007Q3

REPORT INFORMATION
  Report Type: 
  Country: None (occurrence: None)
  Receive Date: 20070809
  Receipt Date: 20070809
  Transmission Date: 20080115
  Serious: Yes (Death)
  Sender: FDA-Public Use
  Company Number: None

PATIENT
  Sex: Male
  Weight: 83.4619 kg

DRUGS (2)
  1. BYETTA [Suspect]
     Indication: DIABETES MELLITUS
     Dosage: SEE ABOVE  ONE INJECTION SQ
     Route: 058
     Dates: start: 20070709, end: 20070709
  2. AVANDIA [Suspect]
     Indication: DIABETES MELLITUS
     Dosage: 4MG  ONE TAB DAILY PO
     Route: 048
     Dates: start: 20060804, end: 20070709

REACTIONS (2)
  - MALAISE [None]
  - UNRESPONSIVE TO STIMULI [None]
